FAERS Safety Report 4785551-2 (Version None)
Quarter: 2005Q4

REPORT INFORMATION
  Report Type: 
  Country: None (occurrence: None)
  Receive Date: 20051003
  Receipt Date: 20050920
  Transmission Date: 20060501
  Serious: Yes (Hospitalization)
  Sender: FDA-Public Use
  Company Number: US-GLAXOSMITHKLINE-A0575069B

PATIENT
  Sex: Female

DRUGS (5)
  1. PAROXETINE HCL [Suspect]
     Indication: DEPRESSION
     Dosage: 20MG PER DAY
     Dates: start: 20050201, end: 20050607
  2. AMILORIDE HCL [Concomitant]
  3. INDOMETHACIN [Concomitant]
  4. POTASSIUM [Concomitant]
  5. MAGNESIUM [Concomitant]

REACTIONS (3)
  - BARTTER'S SYNDROME [None]
  - CONVULSION [None]
  - URTICARIA [None]
